FAERS Safety Report 18756904 (Version 1)
Quarter: 2021Q1

REPORT INFORMATION
  Report Type: Spontaneous
  Country: US (occurrence: US)
  Receive Date: 20210119
  Receipt Date: 20210119
  Transmission Date: 20210419
  Serious: No
  Sender: FDA-Public Use
  Company Number: US-FRESENIUS KABI-FK202100609

PATIENT
  Sex: Female

DRUGS (3)
  1. OMEGAVEN [Suspect]
     Active Substance: FISH OIL
     Indication: PARENTERAL NUTRITION
     Route: 065
     Dates: end: 202012
  2. GLYCINE MAX SEED OIL/OLEA EUROPAEA OIL [Suspect]
     Active Substance: OLIVE OIL\SOYBEAN OIL
     Indication: PARENTERAL NUTRITION
     Route: 065
     Dates: start: 20200925, end: 202012
  3. SMOFLIPID [Suspect]
     Active Substance: FISH OIL\MEDIUM-CHAIN TRIGLYCERIDES\OLIVE OIL\SOYBEAN OIL
     Indication: PARENTERAL NUTRITION
     Route: 065
     Dates: end: 20200925

REACTIONS (3)
  - Hyperbilirubinaemia [Unknown]
  - Fatty acid deficiency [Unknown]
  - Jaundice [Unknown]

NARRATIVE: CASE EVENT DATE: 202009
